FAERS Safety Report 26187302 (Version 1)
Quarter: 2025Q4

REPORT INFORMATION
  Report Type: Spontaneous
  Country: EU (occurrence: EU)
  Receive Date: 20251222
  Receipt Date: 20251222
  Transmission Date: 20260117
  Serious: Yes (Life-Threatening)
  Sender: OTSUKA
  Company Number: None

PATIENT
  Age: 29 Year
  Sex: Female
  Weight: 97 kg

DRUGS (1)
  1. ABILIFY [Suspect]
     Active Substance: ARIPIPRAZOLE
     Indication: Psychiatric symptom
     Dosage: 5 MG, QD
     Route: 065
     Dates: start: 20220817, end: 20220830

REACTIONS (1)
  - Hepatic pain [Recovered/Resolved]

NARRATIVE: CASE EVENT DATE: 20220817
